FAERS Safety Report 20552105 (Version 2)
Quarter: 2022Q1

REPORT INFORMATION
  Report Type: Report from Study
  Country: KR (occurrence: KR)
  Receive Date: 20220304
  Receipt Date: 20220321
  Transmission Date: 20220423
  Serious: Yes (Death, Other)
  Sender: FDA-Public Use
  Company Number: KR-GLAXOSMITHKLINE-KR2022GSK029819

PATIENT
  Age: 79 Year
  Sex: Male
  Weight: 41 kg

DRUGS (16)
  1. FLUTICASONE FUROATE\UMECLIDINIUM BROMIDE\VILANTEROL TRIFENATATE [Suspect]
     Active Substance: FLUTICASONE FUROATE\UMECLIDINIUM BROMIDE\VILANTEROL TRIFENATATE
     Indication: Chronic obstructive pulmonary disease
     Dosage: UNK UNK, QD
     Route: 055
     Dates: start: 20220126
  2. PREDNISOLONE [Concomitant]
     Active Substance: PREDNISOLONE
     Indication: Pneumonia
     Dosage: 5 MG, BID
     Route: 048
     Dates: start: 20191120
  3. PRANLUKAST [Concomitant]
     Active Substance: PRANLUKAST
     Indication: Chronic obstructive pulmonary disease
     Dosage: 225 MG, BID
     Route: 048
     Dates: start: 20170619
  4. IPEC PLUS [Concomitant]
     Indication: Prophylaxis
     Dosage: 1 DF, BID
     Route: 048
     Dates: start: 20121105
  5. DOXOFYLLINE [Concomitant]
     Active Substance: DOXOFYLLINE
     Indication: Chronic obstructive pulmonary disease
     Dosage: 400 MG, BID
     Route: 048
     Dates: start: 20121105
  6. SYNATURA [Concomitant]
     Indication: Productive cough
     Dosage: 15 ML, TID
     Route: 048
     Dates: start: 20220119
  7. TOVIAZ PR [Concomitant]
     Indication: Urge incontinence
     Dosage: 4 MG, BID
     Route: 048
     Dates: start: 20151023
  8. DULOXETINE [Concomitant]
     Active Substance: DULOXETINE
     Indication: Psychotic disorder
     Dosage: 60 MG, QD
     Route: 048
     Dates: start: 20171229
  9. ENTELON [Concomitant]
     Indication: Retinopathy hypertensive
     Dosage: 50 MG, BID
     Route: 048
     Dates: start: 20220103
  10. LASIX [Concomitant]
     Active Substance: FUROSEMIDE
     Indication: Cardiac failure
     Dosage: 40 MG, QD
     Route: 048
     Dates: start: 20220103
  11. SPIRODACTON [Concomitant]
     Indication: Cardiac failure
     Dosage: 25 MG, QD
     Route: 048
     Dates: start: 20220103
  12. DIGOXIN [Concomitant]
     Active Substance: DIGOXIN
     Indication: Cardiac failure
     Dosage: 0.25 MG, QD
     Route: 048
     Dates: start: 20220103
  13. NAXEN-F [Concomitant]
     Indication: Analgesic therapy
     Dosage: 500 MG, TID
     Route: 048
     Dates: start: 20220126
  14. MAGNESIUM HYDROXIDE [Concomitant]
     Active Substance: MAGNESIUM HYDROXIDE
     Indication: Dyspepsia
     Dosage: 500 MG, TID
     Route: 048
     Dates: start: 20220119
  15. NEXIUM [Concomitant]
     Active Substance: ESOMEPRAZOLE MAGNESIUM
     Indication: Gastric ulcer
     Dosage: 20 MG, QD
     Route: 048
     Dates: start: 20211124
  16. PARAMACET TABLET [Concomitant]
     Indication: Analgesic therapy
     Dosage: 1 TAB, TID
     Route: 048
     Dates: start: 20220119

REACTIONS (2)
  - Pneumonia [Fatal]
  - Rectal ulcer [Fatal]

NARRATIVE: CASE EVENT DATE: 20220202
